FAERS Safety Report 9885902 (Version 1)
Quarter: 2014Q1

REPORT INFORMATION
  Report Type: Spontaneous
  Country: FR (occurrence: FR)
  Receive Date: 20140210
  Receipt Date: 20140210
  Transmission Date: 20141002
  Serious: Yes (Hospitalization)
  Sender: FDA-Public Use
  Company Number: FR-TEVA-461595ISR

PATIENT
  Age: 48 Year
  Sex: Female

DRUGS (7)
  1. ESTREVA 0.1% GEL [Suspect]
     Route: 062
     Dates: start: 200806, end: 2009
  2. LUTENYL 3.75 MG [Suspect]
     Route: 048
     Dates: start: 2006, end: 2007
  3. CONTRACEPTIVE DRUG NOS [Suspect]
     Route: 048
     Dates: start: 1982, end: 2002
  4. SURGESTONE [Suspect]
     Route: 048
     Dates: start: 2006, end: 2006
  5. UTROGESTAN [Suspect]
     Dosage: 2 DOSAGE FORMS DAILY;
     Route: 048
     Dates: start: 2001
  6. UTROGESTAN [Suspect]
     Route: 048
     Dates: start: 200806, end: 2009
  7. PARLODEL [Concomitant]

REACTIONS (1)
  - Hepatic adenoma [Recovering/Resolving]
